FAERS Safety Report 5654356-2 (Version None)
Quarter: 2008Q1

REPORT INFORMATION
  Report Type: 
  Country: None (occurrence: None)
  Receive Date: 20080306
  Receipt Date: 20080220
  Transmission Date: 20080703
  Serious: Yes (Other)
  Sender: FDA-Public Use
  Company Number: JP-GENENTECH-256746

PATIENT
  Sex: Male

DRUGS (4)
  1. BEVACIZUMAB [Suspect]
     Indication: RECTAL CANCER
     Dosage: 10 MG/KG, QD
     Route: 041
     Dates: start: 20070724, end: 20070925
  2. OXALIPLATIN [Suspect]
     Indication: RECTAL CANCER
     Route: 041
     Dates: start: 20070724, end: 20070926
  3. FLUOROURACIL [Concomitant]
     Indication: RECTAL CANCER
     Dates: start: 20070724, end: 20070927
  4. ISOVORIN [Concomitant]
     Indication: RECTAL CANCER
     Dates: start: 20070724, end: 20070927

REACTIONS (3)
  - ANAPHYLACTIC SHOCK [None]
  - HYPERTENSION [None]
  - PELVIC ABSCESS [None]
